FAERS Safety Report 18930406 (Version 6)
Quarter: 2022Q1

REPORT INFORMATION
  Report Type: Report from Study
  Country: IT (occurrence: IT)
  Receive Date: 20210224
  Receipt Date: 20220208
  Transmission Date: 20220423
  Serious: Yes (Other)
  Sender: FDA-Public Use
  Company Number: IT-CELLTRION INC.-2021IT002172

PATIENT

DRUGS (17)
  1. TRASTUZUMAB [Suspect]
     Active Substance: TRASTUZUMAB
     Indication: HER2 positive breast cancer
     Dosage: 440 MG, EVERY 3 WEEKS
     Route: 042
     Dates: start: 20190215, end: 20190215
  2. TRASTUZUMAB [Suspect]
     Active Substance: TRASTUZUMAB
     Indication: HER2 positive breast cancer
     Dosage: 330 MG, EVERY 3 WEEKS
     Route: 042
     Dates: start: 20190315
  3. LETROZOLE [Suspect]
     Active Substance: LETROZOLE
     Indication: HER2 positive breast cancer
     Dosage: 2.5 MG, EVERY 1 DAY
     Route: 048
     Dates: start: 20190731
  4. PACLITAXEL [Suspect]
     Active Substance: PACLITAXEL
     Indication: HER2 positive breast cancer
     Dosage: 124.8 MG, EVERY 1 WEEK
     Route: 042
     Dates: start: 20190503, end: 20190628
  5. PALBOCICLIB [Suspect]
     Active Substance: PALBOCICLIB
     Indication: HER2 positive breast cancer
     Dosage: 125 MG, EVERY 1 DAY (DAILY FOR 21 DAYS AND ONE WEEK STOP)
     Route: 048
     Dates: start: 20190731, end: 20191003
  6. PALBOCICLIB [Suspect]
     Active Substance: PALBOCICLIB
     Dosage: 100 MG, EVERY 1 DAY (DAILY FOR 21 DAYS AND ONE WEEK STOP)
     Route: 048
     Dates: start: 20191010
  7. PERTUZUMAB [Suspect]
     Active Substance: PERTUZUMAB
     Indication: HER2 positive breast cancer
     Dosage: 840 MG, EVERY 1 DAY
     Route: 042
     Dates: start: 20190215, end: 20190215
  8. PERTUZUMAB [Suspect]
     Active Substance: PERTUZUMAB
     Dosage: 420 MG, EVERY 3 WEEKS (DOSAGE TEXT: ONGOING)
     Route: 042
     Dates: start: 20190315
  9. CHLORPHENIRAMINE MALEATE [Concomitant]
     Active Substance: CHLORPHENIRAMINE MALEATE
     Dosage: UNK
     Dates: start: 20190731
  10. CHOLECALCIFEROL [Concomitant]
     Active Substance: CHOLECALCIFEROL
     Dosage: UNK (END DATE: 12-NOV-2020 00:00)
     Dates: end: 20201112
  11. DEXAMETHASONE [Concomitant]
     Active Substance: DEXAMETHASONE
     Dosage: UNK
     Dates: start: 20190731
  12. GABAPENTIN [Concomitant]
     Active Substance: GABAPENTIN
     Indication: Paraesthesia
     Dosage: 300 MG, 1 PER DAY
     Route: 048
     Dates: start: 20210805, end: 20210902
  13. LEVOTHYROXINE [Concomitant]
     Active Substance: LEVOTHYROXINE
     Dosage: UNK
  14. NEO EMOCICATROL [Concomitant]
     Dosage: UNK
     Dates: start: 20190307
  15. PANTOPRAZOLE [Concomitant]
     Active Substance: PANTOPRAZOLE
     Dosage: UNK
     Dates: start: 20190404
  16. RAMIPRIL [Concomitant]
     Active Substance: RAMIPRIL
     Dosage: UNK
     Dates: start: 20191211
  17. TRAVOPROST [Concomitant]
     Active Substance: TRAVOPROST

REACTIONS (2)
  - Neutropenia [Recovered/Resolved]
  - Off label use [Unknown]

NARRATIVE: CASE EVENT DATE: 20190821
